FAERS Safety Report 16759264 (Version 1)
Quarter: 2019Q3

REPORT INFORMATION
  Report Type: Spontaneous
  Country: US (occurrence: US)
  Receive Date: 20190830
  Receipt Date: 20190830
  Transmission Date: 20191005
  Serious: No
  Sender: FDA-Public Use
  Company Number: US-JNJFOC-20190830443

PATIENT
  Age: 42 Year
  Sex: Female
  Weight: 90.8 kg

DRUGS (5)
  1. DOXYCYCLINE. [Concomitant]
     Active Substance: DOXYCYCLINE
     Indication: ROSACEA
     Route: 048
  2. XARELTO [Suspect]
     Active Substance: RIVAROXABAN
     Route: 048
     Dates: start: 201908
  3. XARELTO [Suspect]
     Active Substance: RIVAROXABAN
     Route: 048
     Dates: start: 201908, end: 201908
  4. XARELTO [Suspect]
     Active Substance: RIVAROXABAN
     Indication: DEEP VEIN THROMBOSIS
     Route: 048
     Dates: start: 20190706, end: 201907
  5. XARELTO [Suspect]
     Active Substance: RIVAROXABAN
     Route: 048
     Dates: start: 20190821

REACTIONS (10)
  - Feeling abnormal [Recovering/Resolving]
  - Cough [Recovering/Resolving]
  - Heart rate irregular [Recovering/Resolving]
  - Chest discomfort [Recovering/Resolving]
  - Product storage error [Unknown]
  - Fatigue [Recovering/Resolving]
  - Poor quality product administered [Unknown]
  - Muscle spasms [Recovering/Resolving]
  - Irregular breathing [Recovering/Resolving]
  - Dyspnoea [Recovering/Resolving]

NARRATIVE: CASE EVENT DATE: 20190815
